FAERS Safety Report 10419392 (Version 1)
Quarter: 2014Q3

REPORT INFORMATION
  Report Type: Spontaneous
  Country: DE (occurrence: DE)
  Receive Date: 20140829
  Receipt Date: 20140829
  Transmission Date: 20150326
  Serious: Yes (Hospitalization, Other)
  Sender: FDA-Public Use
  Company Number: DE-UCBSA-2014010031

PATIENT
  Age: 46 Year
  Sex: Male
  Weight: 80 kg

DRUGS (3)
  1. LYRICA [Suspect]
     Active Substance: PREGABALIN
     Dosage: UNK, STRENGTH: 150 MG, UNKNOWN AMOUNT
     Route: 048
     Dates: start: 20140819, end: 20140819
  2. KEPPRA [Suspect]
     Active Substance: LEVETIRACETAM
     Dosage: 3 TABLETS, STRENGTH: 500 MG, TOTAL AMOUNT: 1500 MG
     Route: 048
     Dates: start: 20140819, end: 20140819
  3. DOXEPIN [Suspect]
     Active Substance: DOXEPIN
     Dosage: 9 TABLETS, TOTAL AMOUNT: 900 MG
     Route: 048
     Dates: start: 20140819, end: 20140819

REACTIONS (3)
  - Aspiration [Unknown]
  - Coma [Unknown]
  - Suicide attempt [Unknown]

NARRATIVE: CASE EVENT DATE: 201408
